FAERS Safety Report 4274161-1 (Version None)
Quarter: 2004Q1

REPORT INFORMATION
  Report Type: 
  Country: None (occurrence: None)
  Receive Date: 20040115
  Receipt Date: 20030725
  Transmission Date: 20041129
  Serious: Yes (Hospitalization)
  Sender: FDA-Public Use
  Company Number: 2003IC000531

PATIENT
  Age: 46 Year
  Sex: Female

DRUGS (9)
  1. LIBRIUM [Suspect]
     Indication: ALCOHOLISM
     Dosage: 5 MG; DAILY; ORAL
     Route: 048
  2. DIAZEPAM [Suspect]
     Indication: ANXIETY
     Dosage: ORAL
     Route: 048
  3. VITAMIN B COMPLEX CAP [Concomitant]
  4. THIAMINE [Concomitant]
  5. BENDROFLUAZIDE [Concomitant]
  6. PROCHLORERAZINE [Concomitant]
  7. ACAMPROSATE [Concomitant]
  8. DERMOVATE [Concomitant]
  9. DOVONEX [Concomitant]

REACTIONS (4)
  - CONFUSIONAL STATE [None]
  - DYSPNOEA [None]
  - OVERDOSE [None]
  - SEDATION [None]
